FAERS Safety Report 8484715-4 (Version None)
Quarter: 2012Q3

REPORT INFORMATION
  Report Type: 
  Country: None (occurrence: None)
  Receive Date: 20120703
  Receipt Date: 20120530
  Transmission Date: 20120928
  Serious: No
  Sender: FDA-Public Use
  Company Number: US-TEVA-340709USA

PATIENT
  Sex: Female
  Weight: 93.07 kg

DRUGS (12)
  1. COLESEVELAM HYDROCHLORIDE [Concomitant]
     Indication: BLOOD CHOLESTEROL INCREASED
     Dosage: 3750 MILLIGRAM;
     Route: 048
  2. CALCIUM D [Concomitant]
     Indication: MINERAL SUPPLEMENTATION
  3. VICODIN [Concomitant]
     Indication: BACK PAIN
     Route: 048
  4. LANSOPRAZOLE [Concomitant]
     Indication: GASTROOESOPHAGEAL REFLUX DISEASE
     Dosage: 40 MILLIGRAM;
     Route: 048
  5. GABAPENTIN [Concomitant]
     Indication: NEUROPATHY PERIPHERAL
     Dosage: 3600 MILLIGRAM;
     Route: 048
  6. MONTELUKAST [Concomitant]
     Indication: HYPERSENSITIVITY
  7. FLUTICASONE PROPIONATE/SALMETEROL [Concomitant]
     Indication: CHRONIC OBSTRUCTIVE PULMONARY DISEASE
     Route: 055
  8. ALPRAZOLAM [Concomitant]
     Indication: ANXIETY
     Route: 048
  9. TIOTROPIUM BROMIDE [Concomitant]
     Indication: CHRONIC OBSTRUCTIVE PULMONARY DISEASE
     Route: 055
  10. ALBUTEROL SULATE [Concomitant]
     Indication: CHRONIC OBSTRUCTIVE PULMONARY DISEASE
     Route: 055
  11. NUVIGIL [Suspect]
     Indication: SLEEP APNOEA SYNDROME
     Route: 048
     Dates: start: 20100101
  12. MONTELUKAST [Concomitant]
     Indication: ASTHMA
     Dosage: 10 MILLIGRAM;
     Route: 048

REACTIONS (1)
  - DRUG INEFFECTIVE [None]
